FAERS Safety Report 23175638 (Version 2)
Quarter: 2023Q4

REPORT INFORMATION
  Report Type: Spontaneous
  Country: IT (occurrence: IT)
  Receive Date: 20231113
  Receipt Date: 20231221
  Transmission Date: 20240110
  Serious: Yes (Other)
  Sender: FDA-Public Use
  Company Number: IT-ALXN-A202313600

PATIENT
  Age: 3 Year
  Sex: Female
  Weight: 11.5 kg

DRUGS (2)
  1. SOLIRIS [Suspect]
     Active Substance: ECULIZUMAB
     Indication: Atypical haemolytic uraemic syndrome
     Dosage: 300 MILLIGRAM
     Route: 042
     Dates: start: 20120918, end: 201504
  2. CORTISONE [Concomitant]
     Active Substance: CORTISONE
     Indication: Prophylaxis
     Route: 065

REACTIONS (4)
  - Angioedema [Unknown]
  - Bronchospasm [Unknown]
  - Erythema [Unknown]
  - Drug hypersensitivity [Unknown]

NARRATIVE: CASE EVENT DATE: 20150107
